FAERS Safety Report 7240461-6 (Version None)
Quarter: 2011Q1

REPORT INFORMATION
  Report Type: 
  Country: None (occurrence: None)
  Receive Date: 20110124
  Receipt Date: 20110118
  Transmission Date: 20110831
  Serious: No
  Sender: FDA-Public Use
  Company Number: US-PFIZER INC-2011012537

PATIENT
  Age: 67 Year
  Sex: Female
  Weight: 81.633 kg

DRUGS (3)
  1. LYRICA [Suspect]
     Indication: FIBROMYALGIA
     Dosage: 75 MG, 2X/DAY
     Route: 048
     Dates: start: 20110110
  2. LYRICA [Suspect]
     Indication: HERPES ZOSTER
  3. AMBIEN [Concomitant]
     Indication: INSOMNIA
     Dosage: 5 MG, UNK

REACTIONS (1)
  - FEELING DRUNK [None]
